FAERS Safety Report 4698108-9 (Version None)
Quarter: 2005Q2

REPORT INFORMATION
  Report Type: 
  Country: None (occurrence: None)
  Receive Date: 20050622
  Receipt Date: 20050622
  Transmission Date: 20051028
  Serious: Yes (Other)
  Sender: FDA-Public Use
  Company Number: None

PATIENT
  Age: 24 Year
  Sex: Female

DRUGS (1)
  1. LEVAQUIN [Suspect]
     Indication: PYELONEPHRITIS
     Dosage: 500MG   ONCE    ORAL
     Route: 048
     Dates: start: 20050405, end: 20050405

REACTIONS (4)
  - ERYTHEMA [None]
  - PRURITUS [None]
  - SWELLING [None]
  - SWELLING FACE [None]
